FAERS Safety Report 5330120-9 (Version None)
Quarter: 2007Q2

REPORT INFORMATION
  Report Type: 
  Country: None (occurrence: None)
  Receive Date: 20070514
  Receipt Date: 20070501
  Transmission Date: 20071010
  Serious: Yes (Death)
  Sender: FDA-Public Use
  Company Number: 2006141005

PATIENT
  Age: 22 Year
  Sex: Male

DRUGS (2)
  1. DIPHENHYDRAMINE HCL [Suspect]
     Indication: SUICIDE ATTEMPT
     Dosage: ORAL
     Route: 048
  2. DIMENHYDRINATE [Suspect]
     Indication: SUICIDE ATTEMPT
     Dosage: ORAL
     Route: 048

REACTIONS (7)
  - ELECTROCARDIOGRAM QRS COMPLEX PROLONGED [None]
  - ELECTROCARDIOGRAM QRS COMPLEX SHORTENED [None]
  - GRAND MAL CONVULSION [None]
  - NO THERAPEUTIC RESPONSE [None]
  - NODAL RHYTHM [None]
  - SINUS TACHYCARDIA [None]
  - SUICIDE ATTEMPT [None]
